FAERS Safety Report 6491713-9 (Version None)
Quarter: 2009Q4

REPORT INFORMATION
  Report Type: 
  Country: None (occurrence: None)
  Receive Date: 20091211
  Receipt Date: 20091127
  Transmission Date: 20100525
  Serious: Yes (Death)
  Sender: FDA-Public Use
  Company Number: GB-GENENTECH-295604

PATIENT
  Sex: Female
  Weight: 71.5 kg

DRUGS (14)
  1. RITUXIMAB [Suspect]
     Indication: DIFFUSE LARGE B-CELL LYMPHOMA
     Dosage: 620 MG, UNK
     Route: 042
     Dates: start: 20091107, end: 20091107
  2. GEMCITABINE [Suspect]
     Indication: DIFFUSE LARGE B-CELL LYMPHOMA
     Dosage: 1254 MG, UNK
     Route: 042
     Dates: start: 20091107, end: 20091107
  3. CYCLOPHOSPHAMIDE [Suspect]
     Indication: DIFFUSE LARGE B-CELL LYMPHOMA
     Dosage: 1240 MG, UNK
     Route: 042
     Dates: start: 20091107, end: 20091107
  4. VINCRISTINE [Suspect]
     Indication: DIFFUSE LARGE B-CELL LYMPHOMA
     Dosage: 2 MG, UNK
     Route: 042
     Dates: start: 20091107, end: 20091107
  5. PREDNISOLONE [Suspect]
     Indication: DIFFUSE LARGE B-CELL LYMPHOMA
     Dosage: 100 MG, UNK
     Route: 048
     Dates: start: 20091107, end: 20091107
  6. ATENOLOL [Concomitant]
     Indication: DRUG USE FOR UNKNOWN INDICATION
     Dosage: 50 MG, BID
     Route: 048
     Dates: end: 20091108
  7. BENDROFLUMETHIAZIDE [Concomitant]
     Indication: DRUG USE FOR UNKNOWN INDICATION
     Dosage: 2.5 MG, QAM
     Route: 048
     Dates: end: 20091108
  8. ISOSORBIDE MONONITRATE [Concomitant]
     Indication: DRUG USE FOR UNKNOWN INDICATION
     Dosage: 25 MG, QAM
     Route: 048
     Dates: end: 20091108
  9. ALLOPURINOL [Concomitant]
     Indication: GOUT
     Dosage: 300 MG, QAM
     Route: 048
     Dates: end: 20091108
  10. ONDANSETRON [Concomitant]
     Indication: PROPHYLAXIS OF NAUSEA AND VOMITING
     Dosage: 8 MG, BID
     Route: 048
     Dates: start: 20091107, end: 20091108
  11. DOMPERIDONE [Concomitant]
     Indication: PROPHYLAXIS OF NAUSEA AND VOMITING
     Dosage: UNK
     Route: 048
     Dates: start: 20091107, end: 20091108
  12. PREDNISOLONE [Concomitant]
     Indication: STEROID THERAPY
     Dosage: 100 MG, QAM
     Route: 048
     Dates: start: 20091107, end: 20091108
  13. NITROGLYCERIN [Concomitant]
     Indication: DRUG USE FOR UNKNOWN INDICATION
     Dosage: 1 UNK, PRN
     Route: 048
     Dates: end: 20091108
  14. HYPROMELLOSE [Concomitant]
     Indication: DRUG USE FOR UNKNOWN INDICATION
     Dosage: 1 GTT, QAM
     Route: 047
     Dates: end: 20091108

REACTIONS (1)
  - PULMONARY OEDEMA [None]
